FAERS Safety Report 7854544-0 (Version None)
Quarter: 2011Q4

REPORT INFORMATION
  Report Type: 
  Country: None (occurrence: None)
  Receive Date: 20111026
  Receipt Date: 20111019
  Transmission Date: 20120403
  Serious: Yes (Other)
  Sender: FDA-Public Use
  Company Number: US-AMGEN-USASP2011054481

PATIENT
  Sex: Male

DRUGS (1)
  1. NPLATE [Suspect]
     Indication: MYELODYSPLASTIC SYNDROME
     Dates: start: 20110526

REACTIONS (1)
  - THERAPEUTIC RESPONSE DECREASED [None]
